FAERS Safety Report 24115685 (Version 3)
Quarter: 2024Q3

REPORT INFORMATION
  Report Type: Spontaneous
  Country: US (occurrence: US)
  Receive Date: 20240721
  Receipt Date: 20240721
  Transmission Date: 20241017
  Serious: No
  Sender: NOVO NORDISK
  Company Number: US-NOVOPROD-1187728

PATIENT
  Age: 69 Year
  Sex: Female

DRUGS (4)
  1. WEGOVY [Suspect]
     Active Substance: SEMAGLUTIDE
     Dosage: UNK (DOSE INCREASE)
     Route: 058
  2. WEGOVY [Suspect]
     Active Substance: SEMAGLUTIDE
     Indication: Weight control
     Dosage: 0.25
     Route: 058
     Dates: start: 20230201
  3. WEGOVY [Suspect]
     Active Substance: SEMAGLUTIDE
     Indication: Weight control
     Dosage: 2.4 MG
     Route: 058
     Dates: start: 20240122
  4. WEGOVY [Suspect]
     Active Substance: SEMAGLUTIDE
     Indication: Weight control
     Dosage: 1.7 MG
     Route: 058

REACTIONS (10)
  - Increased appetite [Recovered/Resolved]
  - Retching [Not Recovered/Not Resolved]
  - Morning sickness [Not Recovered/Not Resolved]
  - Nausea [Recovered/Resolved]
  - Headache [Recovered/Resolved]
  - Nausea [Not Recovered/Not Resolved]
  - Vomiting [Not Recovered/Not Resolved]
  - Product availability issue [Unknown]
  - Off label use [Unknown]
  - Product dose omission issue [Unknown]

NARRATIVE: CASE EVENT DATE: 20230201
